FAERS Safety Report 8914627 (Version 1)
Quarter: 2012Q4

REPORT INFORMATION
  Report Type: 
  Country: GB (occurrence: GB)
  Receive Date: 20121119
  Receipt Date: 20121119
  Transmission Date: 20130627
  Serious: Yes (Other)
  Sender: FDA-Public Use
  Company Number: GB-TEVA-369294ISR

PATIENT
  Age: 62 Year
  Sex: Male
  Weight: 96 kg

DRUGS (12)
  1. FINASTERIDE [Suspect]
     Indication: BLADDER DISORDER
     Dates: start: 20121003, end: 20121014
  2. TAMSULOSIN [Suspect]
     Indication: BLADDER DISORDER
     Dates: start: 20121003, end: 20121014
  3. EZETIMIBE [Concomitant]
  4. LACTULOSE [Concomitant]
     Dosage: 3x 5ml as required
  5. METFORMIN HYDROCHLORIDE [Concomitant]
  6. MONTELUKAST SODIUM [Concomitant]
     Dosage: Taken in the evening
  7. OMEPRAZOLE [Concomitant]
     Dosage: Taken in the evening
  8. SITAGLIPTIN [Concomitant]
  9. SENNA [Concomitant]
     Dosage: 7.5mg, two or three taken in the morning
  10. SYMBICORT [Concomitant]
     Route: 055
  11. TERBUTALINE [Concomitant]
     Dosage: Taken when needed
     Route: 055
  12. ZOMORPH [Concomitant]

REACTIONS (9)
  - Headache [Recovering/Resolving]
  - Chest pain [Recovering/Resolving]
  - Abdominal pain [Recovering/Resolving]
  - Palpitations [Recovering/Resolving]
  - Testicular pain [Recovering/Resolving]
  - Dizziness [Recovering/Resolving]
  - Diarrhoea [Recovering/Resolving]
  - Pain [Recovering/Resolving]
  - Malaise [Recovering/Resolving]
